FAERS Safety Report 24709352 (Version 1)
Quarter: 2024Q4

REPORT INFORMATION
  Report Type: Spontaneous
  Country: US (occurrence: US)
  Receive Date: 20241208
  Receipt Date: 20241208
  Transmission Date: 20250114
  Serious: Yes (Other)
  Sender: NOVO NORDISK
  Company Number: US-NOVOPROD-1327740

PATIENT
  Age: 84 Year
  Sex: Female

DRUGS (1)
  1. OZEMPIC [Suspect]
     Active Substance: SEMAGLUTIDE
     Indication: Type 2 diabetes mellitus
     Dosage: UNK
     Route: 058
     Dates: start: 20240401

REACTIONS (2)
  - Ischaemic stroke [Recovered/Resolved]
  - Pruritus [Recovered/Resolved]

NARRATIVE: CASE EVENT DATE: 20240404
